FAERS Safety Report 15549918 (Version 1)
Quarter: 2018Q4

REPORT INFORMATION
  Report Type: Spontaneous
  Country: US (occurrence: US)
  Receive Date: 20181018
  Receipt Date: 20181018
  Transmission Date: 20190205
  Serious: Yes (Hospitalization)
  Sender: FDA-Public Use
  Company Number: None

PATIENT
  Age: 20 Year
  Sex: Female

DRUGS (7)
  1. PULMOZYME [Suspect]
     Active Substance: DORNASE ALFA
     Indication: CYSTIC FIBROSIS
     Dosage: ?          OTHER DOSE:1/1 MG/ML;?
     Route: 055
     Dates: start: 20140306
  2. ALBUTEROL. [Concomitant]
     Active Substance: ALBUTEROL
  3. MONTELUKAST [Concomitant]
     Active Substance: MONTELUKAST SODIUM
  4. TOBROMYCIN 300MG/5ML [Suspect]
     Active Substance: TOBRAMYCIN
     Dosage: ?          OTHER DOSE:300/5 MG/ML;?
     Route: 055
     Dates: start: 20161128
  5. PANTOPRAZOLE [Concomitant]
     Active Substance: PANTOPRAZOLE
  6. SYMBICORT [Concomitant]
     Active Substance: BUDESONIDE\FORMOTEROL FUMARATE DIHYDRATE
  7. SYMDEKO [Concomitant]
     Active Substance: IVACAFTOR\TEZACAFTOR

REACTIONS (1)
  - Bacterial infection [None]

NARRATIVE: CASE EVENT DATE: 20181012
